FAERS Safety Report 5391738-0 (Version None)
Quarter: 2007Q3

REPORT INFORMATION
  Report Type: 
  Country: None (occurrence: None)
  Receive Date: 20070717
  Receipt Date: 20070703
  Transmission Date: 20080115
  Serious: Yes (Other)
  Sender: FDA-Public Use
  Company Number: RENA-12204

PATIENT
  Age: 68 Year
  Sex: Male
  Weight: 70 kg

DRUGS (1)
  1. RENAGEL [Suspect]
     Indication: HYPERPHOSPHATAEMIA
     Dosage: 3 TAB DAILY PO
     Route: 048
     Dates: start: 20040218, end: 20040306

REACTIONS (3)
  - CEREBELLAR SYNDROME [None]
  - CEREBRAL ATROPHY [None]
  - CEREBRAL CALCIFICATION [None]
